FAERS Safety Report 8308480-6 (Version None)
Quarter: 2012Q2

REPORT INFORMATION
  Report Type: 
  Country: None (occurrence: None)
  Receive Date: 20120424
  Receipt Date: 20120419
  Transmission Date: 20120825
  Serious: Yes (Hospitalization)
  Sender: FDA-Public Use
  Company Number: ES-ROCHE-1061530

PATIENT
  Age: 58 Year
  Sex: Female

DRUGS (4)
  1. CYCLOPHOSPHAMIDE [Suspect]
     Indication: B-CELL LYMPHOMA STAGE IV
  2. RITUXIMAB [Suspect]
     Indication: B-CELL LYMPHOMA STAGE IV
  3. PREDNISONE TAB [Suspect]
     Indication: B-CELL LYMPHOMA STAGE IV
  4. VINCRISTINE [Suspect]
     Indication: B-CELL LYMPHOMA STAGE IV

REACTIONS (3)
  - PNEUMONITIS [None]
  - PULMONARY FIBROSIS [None]
  - FEBRILE NEUTROPENIA [None]
